FAERS Safety Report 7828749-9 (Version None)
Quarter: 2011Q4

REPORT INFORMATION
  Report Type: 
  Country: None (occurrence: None)
  Receive Date: 20111020
  Receipt Date: 20111010
  Transmission Date: 20120403
  Serious: Yes (Hospitalization, Other)
  Sender: FDA-Public Use
  Company Number: US-BAXTER-2011BH030824

PATIENT
  Sex: Female

DRUGS (1)
  1. DIANEAL [Suspect]
     Indication: PERITONEAL DIALYSIS
     Route: 033
     Dates: start: 20100801

REACTIONS (10)
  - GASTROINTESTINAL MOTILITY DISORDER [None]
  - BLOOD POTASSIUM DECREASED [None]
  - HYPOTENSION [None]
  - VOMITING [None]
  - DEHYDRATION [None]
  - ABDOMINAL PAIN UPPER [None]
  - TREATMENT NONCOMPLIANCE [None]
  - NAUSEA [None]
  - APHAGIA [None]
  - IMPAIRED GASTRIC EMPTYING [None]
